FAERS Safety Report 4524888-9 (Version None)
Quarter: 2004Q4

REPORT INFORMATION
  Report Type: 
  Country: None (occurrence: None)
  Receive Date: 20041117
  Receipt Date: 20040326
  Transmission Date: 20050328
  Serious: Yes (Other)
  Sender: FDA-Public Use
  Company Number: 2004S1000904

PATIENT
  Age: 46 Year
  Sex: Female

DRUGS (9)
  1. CLOZAPINE [Suspect]
     Indication: SCHIZOPHRENIA
     Dosage: 50MG Q, HS, ORAL
     Route: 048
     Dates: start: 20040315, end: 20040325
  2. CLOZAPINE [Suspect]
     Indication: SCHIZOPHRENIA
     Dosage: 700MG Q HS, ORAL
     Route: 048
     Dates: start: 20040315, end: 20040325
  3. METFORMIN HCL [Concomitant]
  4. GLIPIZIDE [Concomitant]
  5. HALOPERIDOL [Concomitant]
  6. DIVALPROEX SODIUM [Concomitant]
  7. BENZTROPINE MESYLATE [Concomitant]
  8. INSULIN [Concomitant]
  9. PANTOPRAZOLE [Concomitant]

REACTIONS (1)
  - NEUTROPENIA [None]
